FAERS Safety Report 5259289-1 (Version None)
Quarter: 2007Q1

REPORT INFORMATION
  Report Type: 
  Country: None (occurrence: None)
  Receive Date: 20070308
  Receipt Date: 20070226
  Transmission Date: 20070707
  Serious: Yes (Life-Threatening, Hospitalization)
  Sender: FDA-Public Use
  Company Number: US-SHR-US-2007-007329

PATIENT
  Age: 68 Year
  Sex: Male

DRUGS (1)
  1. ULTRAVIST 300 [Suspect]
     Dosage: 120 ML, 1 DOSE
     Route: 042
     Dates: start: 20070220, end: 20070220

REACTIONS (4)
  - DYSPHAGIA [None]
  - DYSPNOEA [None]
  - LIP SWELLING [None]
  - LOSS OF CONSCIOUSNESS [None]
